FAERS Safety Report 20720130 (Version 1)
Quarter: 2022Q2

REPORT INFORMATION
  Report Type: Spontaneous
  Country: AT (occurrence: AT)
  Receive Date: 20220418
  Receipt Date: 20220418
  Transmission Date: 20220721
  Serious: Yes (Other)
  Sender: FDA-Public Use
  Company Number: AT-PFIZER INC-202200522899

PATIENT
  Age: 65 Year
  Sex: Female

DRUGS (3)
  1. ATORVASTATIN [Suspect]
     Active Substance: ATORVASTATIN
     Indication: Blood cholesterol increased
     Dosage: 10 MG
  2. ATORVASTATIN [Suspect]
     Active Substance: ATORVASTATIN
     Dosage: 20 MG
  3. TRAMADOL [Suspect]
     Active Substance: TRAMADOL
     Dosage: UNK

REACTIONS (7)
  - Hypothyroidism [Unknown]
  - Diabetes mellitus [Unknown]
  - Weight decreased [Unknown]
  - Palpitations [Unknown]
  - Heart rate increased [Unknown]
  - Paraesthesia [Unknown]
  - Intentional product misuse [Unknown]
